FAERS Safety Report 23238121 (Version 2)
Quarter: 2023Q4

REPORT INFORMATION
  Report Type: Report from Study
  Country: CN (occurrence: CN)
  Receive Date: 20231129
  Receipt Date: 20231206
  Transmission Date: 20240110
  Serious: Yes (Hospitalization)
  Sender: FDA-Public Use
  Company Number: US-Coherus Biosciences, Inc-2023-COH-CN000584

PATIENT

DRUGS (10)
  1. TORIPALIMAB [Suspect]
     Active Substance: TORIPALIMAB
     Indication: Nasopharyngeal cancer
     Dosage: 360 MG, Q3WEEKS
     Route: 058
     Dates: start: 20230629, end: 20231027
  2. GEMCITABINE [Suspect]
     Active Substance: GEMCITABINE
     Indication: Nasopharyngeal cancer
     Dosage: 790 MG, Q3WEEKS
     Route: 042
     Dates: start: 20230629, end: 20231027
  3. GEMCITABINE [Suspect]
     Active Substance: GEMCITABINE
     Indication: Nasopharyngeal cancer
     Dosage: 790 MG, Q3W
     Route: 042
  4. CISPLATIN [Suspect]
     Active Substance: CISPLATIN
     Indication: Nasopharyngeal cancer
     Dosage: 63 MG, Q3WEEKS
     Route: 042
     Dates: start: 20230629, end: 20231027
  5. CISPLATIN [Suspect]
     Active Substance: CISPLATIN
     Indication: Nasopharyngeal cancer
  6. HYDROCHLOROTHIAZIDE [Concomitant]
     Active Substance: HYDROCHLOROTHIAZIDE
     Indication: Face oedema
     Dosage: UNK
     Dates: start: 20230928, end: 202311
  7. HYDROCHLOROTHIAZIDE [Concomitant]
     Active Substance: HYDROCHLOROTHIAZIDE
     Indication: Face oedema
     Dosage: 25 MG, QD
     Route: 048
  8. AMBROXOL [Concomitant]
     Active Substance: AMBROXOL
     Indication: Cough
     Dosage: UNK
     Dates: start: 20230928, end: 202311
  9. Fu fang zao fan [Concomitant]
     Indication: Anaemia
     Dosage: UNK
     Dates: start: 20231010, end: 202311
  10. Codeine phosphate and platycodon [Concomitant]
     Indication: Cough
     Dosage: UNK
     Dates: start: 20231027, end: 202311

REACTIONS (1)
  - Cardiac failure [Recovering/Resolving]

NARRATIVE: CASE EVENT DATE: 20231110
